FAERS Safety Report 8157156-7 (Version None)
Quarter: 2012Q1

REPORT INFORMATION
  Report Type: 
  Country: None (occurrence: None)
  Receive Date: 20120222
  Receipt Date: 20120209
  Transmission Date: 20120608
  Serious: Yes (Hospitalization)
  Sender: FDA-Public Use
  Company Number: US-ROCHE-1039249

PATIENT
  Sex: Female
  Weight: 78.542 kg

DRUGS (27)
  1. FOLIC ACID [Concomitant]
     Dates: start: 20111025
  2. PREDNISONE [Concomitant]
     Dates: start: 20100604
  3. DILTIAZEM HCL [Concomitant]
     Dates: start: 20120118
  4. FOLIC ACID [Concomitant]
     Dates: start: 20100409
  5. ACETAMINOPHEN [Concomitant]
     Dates: start: 20120118
  6. DILTIAZEM HCL [Concomitant]
     Dates: start: 20100604
  7. LISINOPRIL [Concomitant]
     Dates: start: 20100604
  8. LISINOPRIL [Concomitant]
     Dates: start: 20120118
  9. PREDNISONE [Concomitant]
     Dates: start: 20111025
  10. REMICADE [Concomitant]
     Route: 042
     Dates: start: 20100604
  11. LIPITOR [Concomitant]
     Dates: start: 20120118
  12. DILTIAZEM HCL [Concomitant]
     Dates: start: 20111025
  13. FOLIC ACID [Concomitant]
     Dates: start: 20120118
  14. VITAMIN D [Concomitant]
     Dosage: 1000 I
     Dates: start: 20100604
  15. VITAMIN D [Concomitant]
     Dosage: 1000 I
     Dates: start: 20111025
  16. ASCORBIC ACID [Concomitant]
     Dates: start: 20111025
  17. FOLIC ACID [Concomitant]
     Dates: start: 20100604
  18. VITAMIN D [Concomitant]
     Dosage: 1000 I
     Dates: start: 20120118
  19. ZOLOFT [Concomitant]
     Dates: start: 20100604
  20. ZOLOFT [Concomitant]
     Dates: start: 20120118
  21. PREDNISONE [Concomitant]
     Dates: start: 20120118
  22. LIPITOR [Concomitant]
     Dates: start: 20100604
  23. LIPITOR [Concomitant]
     Dates: start: 20111025
  24. ASCORBIC ACID [Concomitant]
     Dates: start: 20100604
  25. ACTEMRA [Suspect]
     Indication: RHEUMATOID ARTHRITIS
     Dosage: FIRST INFUSION
     Dates: start: 20120206
  26. LISINOPRIL [Concomitant]
     Dates: start: 20111025
  27. ASCORBIC ACID [Concomitant]
     Dates: start: 20120118

REACTIONS (1)
  - GASTROINTESTINAL HAEMORRHAGE [None]
